FAERS Safety Report 13091215 (Version 1)
Quarter: 2017Q1

REPORT INFORMATION
  Report Type: Spontaneous
  Country: US (occurrence: US)
  Receive Date: 20170106
  Receipt Date: 20170106
  Transmission Date: 20170428
  Serious: No
  Sender: FDA-Public Use
  Company Number: US-JNJFOC-20161116047

PATIENT
  Age: 62 Year
  Sex: Female
  Weight: 61.69 kg

DRUGS (5)
  1. MOTRIN IB [Suspect]
     Active Substance: IBUPROFEN
     Indication: PROCEDURAL PAIN
     Dosage: 1-2 PER DAY
     Route: 048
     Dates: start: 20161026, end: 20161103
  2. SELENIUM [Concomitant]
     Active Substance: SELENIUM
     Indication: PROPHYLAXIS
     Dosage: 1 EOD 1 MONTH
     Route: 065
  3. GLUCOSAMINE/MSM [Concomitant]
     Indication: ARTHROPATHY
     Dosage: 1 MONTH 2 MONTHS
     Route: 065
     Dates: start: 20160915
  4. MOTRIN IB [Suspect]
     Active Substance: IBUPROFEN
     Route: 048
  5. VITAMIN C [Concomitant]
     Active Substance: ASCORBIC ACID
     Indication: NUTRITIONAL SUPPLEMENTATION
     Dosage: 2 PER DAY 3 MONTHS
     Route: 065

REACTIONS (1)
  - Abdominal pain upper [Recovered/Resolved]

NARRATIVE: CASE EVENT DATE: 20161103
